FAERS Safety Report 4673760-2 (Version None)
Quarter: 2005Q2

REPORT INFORMATION
  Report Type: 
  Country: None (occurrence: None)
  Receive Date: 20050524
  Receipt Date: 20050513
  Transmission Date: 20051028
  Serious: Yes (Death)
  Sender: FDA-Public Use
  Company Number: 11096

PATIENT
  Age: 62 Year
  Sex: Female

DRUGS (1)
  1. PAMIDRONATE ACID [Suspect]
     Indication: OSTEOPOROSIS
     Dosage: 3 MG
     Route: 042
     Dates: start: 20050329, end: 20050329

REACTIONS (1)
  - SUDDEN DEATH [None]
